FAERS Safety Report 4459385-2 (Version None)
Quarter: 2004Q3

REPORT INFORMATION
  Report Type: 
  Country: None (occurrence: None)
  Receive Date: 20040927
  Receipt Date: 20040923
  Transmission Date: 20050211
  Serious: Yes (Other)
  Sender: FDA-Public Use
  Company Number: PHBS2004BE12696

PATIENT
  Age: 90 Year
  Sex: Female

DRUGS (3)
  1. FEMARA [Suspect]
     Route: 048
  2. SINTROM [Suspect]
     Route: 048
  3. SINTROM [Suspect]
     Route: 048

REACTIONS (2)
  - DRUG INTERACTION [None]
  - URINARY BLADDER HAEMORRHAGE [None]
